FAERS Safety Report 5102397-6 (Version None)
Quarter: 2006Q3

REPORT INFORMATION
  Report Type: 
  Country: None (occurrence: None)
  Receive Date: 20060912
  Receipt Date: 20060720
  Transmission Date: 20061208
  Serious: Yes (Disabling, Other)
  Sender: FDA-Public Use
  Company Number: PHHO2006US11753

PATIENT
  Age: 65 Year
  Sex: Female

DRUGS (5)
  1. ZOLEDRONATE [Suspect]
     Indication: METASTASES TO BONE
     Dosage: 4MG EVERY 6 MONTHS
     Route: 042
     Dates: start: 20030311
  2. VIOXX [Concomitant]
  3. FEMARA [Suspect]
     Indication: BREAST CANCER
     Dosage: 2.5 MG, QD
     Route: 048
     Dates: start: 20030311
  4. VITAMIN D [Concomitant]
  5. CALCIUM GLUCONATE [Concomitant]

REACTIONS (1)
  - OSTEONECROSIS [None]
